FAERS Safety Report 8548051-X (Version None)
Quarter: 2012Q3

REPORT INFORMATION
  Report Type: 
  Country: None (occurrence: None)
  Receive Date: 20120730
  Receipt Date: 20120720
  Transmission Date: 20120928
  Serious: Yes (Death)
  Sender: FDA-Public Use
  Company Number: AT-ROCHE-1091097

PATIENT
  Sex: Male
  Weight: 99 kg

DRUGS (3)
  1. CAPECITABINE [Suspect]
     Indication: RECTAL NEOPLASM
     Route: 048
     Dates: start: 20120704, end: 20120715
  2. AVASTIN [Suspect]
     Indication: RECTAL NEOPLASM
     Route: 042
     Dates: start: 20120704
  3. OXALIPLATIN [Concomitant]
     Indication: RECTAL NEOPLASM
     Route: 042
     Dates: start: 20120704

REACTIONS (4)
  - RENAL FAILURE [None]
  - DIARRHOEA HAEMORRHAGIC [None]
  - LEUKOPENIA [None]
  - SEPSIS [None]
